FAERS Safety Report 6347595-9 (Version None)
Quarter: 2009Q3

REPORT INFORMATION
  Report Type: 
  Country: None (occurrence: None)
  Receive Date: 20090909
  Receipt Date: 20090909
  Transmission Date: 20100115
  Serious: Yes (Other)
  Sender: FDA-Public Use
  Company Number: None

PATIENT
  Sex: Female

DRUGS (2)
  1. BENEFIBER W/ WHEAT DEXTRIN (NCH) (WHEAT DEXTRIN) POWDER [Suspect]
     Indication: FAECAL INCONTINENCE
     Dosage: 3TSP IN THE MORNING AND THE EVENING, ORAL
     Route: 048
  2. ANTIHYPERTENSIVE DRUGS (NO INGREDIENTS/SUBSTANCES) [Suspect]
     Indication: BLOOD PRESSURE MANAGEMENT

REACTIONS (4)
  - ABNORMAL FAECES [None]
  - DEHYDRATION [None]
  - HYPERTENSION [None]
  - POLYDIPSIA [None]
